FAERS Safety Report 5532922-2 (Version None)
Quarter: 2007Q4

REPORT INFORMATION
  Report Type: 
  Country: None (occurrence: None)
  Receive Date: 20071129
  Receipt Date: 20071112
  Transmission Date: 20080405
  Serious: Yes (Hospitalization)
  Sender: FDA-Public Use
  Company Number: 8027979

PATIENT
  Age: 75 Year
  Sex: Male

DRUGS (3)
  1. KEPPRA [Suspect]
  2. TEMOZOLOMIDE [Suspect]
     Indication: GLIOBLASTOMA MULTIFORME
     Dosage: 75 MG/M2 1/D PO
     Route: 048
     Dates: start: 20071016, end: 20071025
  3. RISPERDAL [Suspect]

REACTIONS (4)
  - BRAIN OEDEMA [None]
  - CONFUSIONAL STATE [None]
  - INFECTION [None]
  - INTESTINAL OBSTRUCTION [None]
